FAERS Safety Report 4724612-0 (Version None)
Quarter: 2005Q3

REPORT INFORMATION
  Report Type: 
  Country: None (occurrence: None)
  Receive Date: 20050726
  Receipt Date: 20050711
  Transmission Date: 20060218
  Serious: Yes (Other)
  Sender: FDA-Public Use
  Company Number: US-GLAXOSMITHKLINE-A0565655A

PATIENT
  Age: 65 Year
  Sex: Female
  Weight: 99.1 kg

DRUGS (11)
  1. FEOSOL IRON THERAPY CAPLETS [Suspect]
     Indication: BLOOD IRON DECREASED
     Route: 048
     Dates: start: 20050501
  2. LISINOPRIL [Concomitant]
     Indication: HYPERTENSION
     Route: 048
  3. SYNTHROID [Concomitant]
     Indication: HYPOTHYROIDISM
     Route: 048
  4. NEXIUM [Concomitant]
     Indication: GASTROOESOPHAGEAL REFLUX DISEASE
     Route: 048
  5. ADVAIR DISKUS 100/50 [Concomitant]
     Indication: ASTHMA
     Route: 055
  6. ZANTAC [Concomitant]
     Indication: GASTROOESOPHAGEAL REFLUX DISEASE
     Route: 048
  7. MULTI-VITAMIN [Concomitant]
     Route: 048
  8. ASCORBIC ACID [Concomitant]
     Route: 048
  9. GLUCOSAMINE [Concomitant]
     Route: 048
  10. CITRACAL [Concomitant]
     Route: 048
  11. SPIRIVA [Concomitant]
     Route: 055

REACTIONS (2)
  - DIARRHOEA HAEMORRHAGIC [None]
  - RECTAL HAEMORRHAGE [None]
